FAERS Safety Report 24766382 (Version 1)
Quarter: 2024Q4

REPORT INFORMATION
  Report Type: Spontaneous
  Country: CA (occurrence: CA)
  Receive Date: 20241223
  Receipt Date: 20241223
  Transmission Date: 20250115
  Serious: Yes (Hospitalization)
  Sender: DR REDDYS
  Company Number: None

PATIENT
  Age: 69 Year
  Sex: Male

DRUGS (4)
  1. LENALIDOMIDE [Suspect]
     Active Substance: LENALIDOMIDE
     Indication: Stem cell transplant
     Route: 065
  2. LENALIDOMIDE [Suspect]
     Active Substance: LENALIDOMIDE
     Indication: Plasma cell myeloma
     Route: 048
  3. LENALIDOMIDE [Suspect]
     Active Substance: LENALIDOMIDE
     Route: 048
  4. LENALIDOMIDE [Suspect]
     Active Substance: LENALIDOMIDE
     Route: 048

REACTIONS (10)
  - Blue toe syndrome [Recovered/Resolved]
  - Chest pain [Recovered/Resolved]
  - Gait disturbance [Recovered/Resolved]
  - Infection [Recovered/Resolved]
  - Intentional product use issue [Unknown]
  - Localised infection [Recovered/Resolved]
  - Malaise [Recovered/Resolved]
  - Off label use [Unknown]
  - Pain in extremity [Recovered/Resolved]
  - White blood cell count decreased [Recovered/Resolved]
